FAERS Safety Report 13318223 (Version 1)
Quarter: 2017Q1

REPORT INFORMATION
  Report Type: Spontaneous
  Country: US (occurrence: US)
  Receive Date: 20170310
  Receipt Date: 20170310
  Transmission Date: 20170428
  Serious: Yes (Death)
  Sender: FDA-Public Use
  Company Number: US-ROCHE-1904117

PATIENT
  Sex: Female
  Weight: 131.66 kg

DRUGS (2)
  1. XELODA [Suspect]
     Active Substance: CAPECITABINE
     Dosage: TK 4T PO BID, 14 DAYS ON AND 7 DAYS OFF
     Route: 048
     Dates: start: 20130923, end: 20170307
  2. XELODA [Suspect]
     Active Substance: CAPECITABINE
     Indication: PRODUCT USED FOR UNKNOWN INDICATION
     Route: 048
     Dates: start: 20130923

REACTIONS (1)
  - Death [Fatal]
